FAERS Safety Report 4364807-1 (Version None)
Quarter: 2004Q2

REPORT INFORMATION
  Report Type: 
  Country: None (occurrence: None)
  Receive Date: 20040526
  Receipt Date: 20040302
  Transmission Date: 20050107
  Serious: No
  Sender: FDA-Public Use
  Company Number: US-GLAXOSMITHKLINE-A0500729A

PATIENT
  Age: 64 Year
  Sex: Female

DRUGS (5)
  1. LOTRONEX [Suspect]
     Indication: IRRITABLE BOWEL SYNDROME
     Dosage: .5MG PER DAY
     Route: 048
  2. PRILOSEC [Concomitant]
  3. PREMPRO [Concomitant]
  4. BLOOD PRESSURE MEDICATION [Concomitant]
     Route: 065
  5. IMODIUM A-D [Concomitant]

REACTIONS (1)
  - DRUG INEFFECTIVE [None]
